FAERS Safety Report 4454794-X (Version None)
Quarter: 2004Q3

REPORT INFORMATION
  Report Type: 
  Country: None (occurrence: None)
  Receive Date: 20040921
  Receipt Date: 20040908
  Transmission Date: 20050211
  Serious: Yes (Hospitalization)
  Sender: FDA-Public Use
  Company Number: NL-JNJFOC-20040600194

PATIENT
  Sex: Male

DRUGS (6)
  1. CORDIUM [Suspect]
     Indication: DRUG USE FOR UNKNOWN INDICATION
  2. INDAPAMIDE [Concomitant]
  3. SODIUM GUALENATE [Concomitant]
     Route: 049
  4. FUROSEMIDE [Concomitant]
     Indication: CARDIOMYOPATHY
     Route: 049
  5. FAMOTIDINE [Concomitant]
     Route: 049
  6. IMIDAPRIL HYDROCHLORIDE [Concomitant]
     Indication: CARDIOMYOPATHY
     Route: 049

REACTIONS (8)
  - ALANINE AMINOTRANSFERASE INCREASED [None]
  - ANOREXIA [None]
  - ASPARTATE AMINOTRANSFERASE INCREASED [None]
  - BLOOD LACTATE DEHYDROGENASE INCREASED [None]
  - C-REACTIVE PROTEIN INCREASED [None]
  - GAMMA-GLUTAMYLTRANSFERASE INCREASED [None]
  - MALAISE [None]
  - NAUSEA [None]
